FAERS Safety Report 9090880 (Version 1)
Quarter: 2013Q1

REPORT INFORMATION
  Report Type: Spontaneous
  Country: FR (occurrence: FR)
  Receive Date: 20130201
  Receipt Date: 20130201
  Transmission Date: 20140127
  Serious: Yes (Hospitalization)
  Sender: FDA-Public Use
  Company Number: FR-MERCK-2001-08-2007

PATIENT
  Age: 8 Year
  Sex: Male

DRUGS (8)
  1. POLLEN EXTRACT [Concomitant]
     Dosage: DOSE: 15 CH QD
  2. SILICON DIOXIDE, COLLOIDAL [Concomitant]
     Dosage: DOSE: 15 CH QD
  3. CLARITYNE [Suspect]
     Indication: ASTHMA
     Dosage: DOSE: UNKNOWN, DURATION: UNKNOWN
     Route: 048
     Dates: start: 200104
  4. ZINC [Suspect]
     Indication: ILL-DEFINED DISORDER
     Dosage: DOSE: 6ML Q1W, DURATION: 2 MONTH(S)
     Dates: start: 200106
  5. BECOTIDE NASAL [Suspect]
     Indication: ASTHMA
     Dosage: DOSE: 2 BREATHS QD, DURATION: UNKNOWN
     Route: 055
     Dates: start: 200104
  6. SINGULAIR [Suspect]
     Indication: ASTHMA
     Dosage: DOSE: UNKNOWN, DURATION: UNKNOWN
     Route: 048
  7. VENTOLINE (ALBUTEROL) [Concomitant]
  8. PULSATILLA [Concomitant]
     Dosage: DOSE: 3 GRANULES QD

REACTIONS (4)
  - Intracranial pressure increased [Unknown]
  - Visual impairment [Unknown]
  - Papilloedema [Unknown]
  - Pulmonary eosinophilia [Unknown]
